FAERS Safety Report 13683268 (Version 1)
Quarter: 2017Q2

REPORT INFORMATION
  Report Type: Spontaneous
  Country: GB (occurrence: GB)
  Receive Date: 20170623
  Receipt Date: 20170623
  Transmission Date: 20170830
  Serious: Yes (Hospitalization, Other)
  Sender: FDA-Public Use
  Company Number: GB-PFIZER INC-2017274456

PATIENT
  Age: 79 Year
  Sex: Male
  Weight: 104.3 kg

DRUGS (9)
  1. IBUPROFEN. [Suspect]
     Active Substance: IBUPROFEN
     Indication: MUSCULOSKELETAL PAIN
     Dosage: 400 MG, 3X/DAY
     Route: 048
     Dates: start: 20170611, end: 20170612
  2. CODEINE [Suspect]
     Active Substance: CODEINE
     Dosage: UNK
     Dates: start: 20170611
  3. TAMSULOSIN [Concomitant]
     Active Substance: TAMSULOSIN
     Dosage: 400 UG, 1X/DAY (MORNING.)
  4. SERETIDE [Concomitant]
     Active Substance: FLUTICASONE PROPIONATE\SALMETEROL XINAFOATE
     Dosage: 2 DF, 2X/DAY (125 EVOHALER)
     Route: 055
  5. SALBUTAMOL [Concomitant]
     Active Substance: ALBUTEROL
     Dosage: 100UG ONE OR 2 PUFFS FOUR TIMES A DAY
     Route: 055
  6. TRAMADOL. [Concomitant]
     Active Substance: TRAMADOL
     Dosage: 50 MG, UNK (ONE OR TWO UP TO FOUR TIMES A DAY)
  7. PIPERACILLIN [Concomitant]
     Active Substance: PIPERACILLIN
     Indication: ABDOMINAL INFECTION
     Dosage: UNK
     Dates: start: 201706
  8. DUTASTERIDE. [Concomitant]
     Active Substance: DUTASTERIDE
     Dosage: 500 UG, 1X/DAY (MORNING.)
  9. TAZOBACTAM [Concomitant]
     Active Substance: TAZOBACTAM
     Indication: ABDOMINAL INFECTION
     Dosage: UNK
     Dates: start: 201706

REACTIONS (1)
  - Acute kidney injury [Recovering/Resolving]

NARRATIVE: CASE EVENT DATE: 20170612
